FAERS Safety Report 25346924 (Version 1)
Quarter: 2025Q2

REPORT INFORMATION
  Report Type: Spontaneous
  Country: US (occurrence: None)
  Receive Date: 20250521
  Receipt Date: 20250521
  Transmission Date: 20250716
  Serious: No
  Sender: FDA-CTU
  Company Number: None

PATIENT
  Age: 34 Year
  Sex: Male
  Weight: 96.75 kg

DRUGS (2)
  1. CETIRIZINE HYDROCHLORIDE (ALLERGY RELIEF) [Suspect]
     Active Substance: CETIRIZINE HYDROCHLORIDE
     Indication: Hypersensitivity
     Dosage: FREQUENCY : TWICE A DAY;?
     Route: 048
  2. CYMBALTA [Concomitant]
     Active Substance: DULOXETINE HYDROCHLORIDE

REACTIONS (3)
  - Pruritus [None]
  - Wound [None]
  - Product administration error [None]

NARRATIVE: CASE EVENT DATE: 20250301
